FAERS Safety Report 4689976-5 (Version None)
Quarter: 2005Q2

REPORT INFORMATION
  Report Type: 
  Country: None (occurrence: None)
  Receive Date: 20050608
  Receipt Date: 20040608
  Transmission Date: 20051028
  Serious: Yes (Other)
  Sender: FDA-Public Use
  Company Number: 370649

PATIENT

DRUGS (2)
  1. ACCUTANE [Suspect]
     Indication: ACNE
     Dosage: 20 MG DAILY
     Dates: start: 20031215
  2. LEXAPRO [Suspect]
     Dosage: 10 MG DAILY ORAL
     Route: 048

REACTIONS (1)
  - CONVULSION [None]
